FAERS Safety Report 15082799 (Version 1)
Quarter: 2018Q2

REPORT INFORMATION
  Report Type: Spontaneous
  Country: US (occurrence: US)
  Receive Date: 20180628
  Receipt Date: 20180628
  Transmission Date: 20180711
  Serious: Yes (Death, Hospitalization)
  Sender: FDA-Public Use
  Company Number: US-B.I. PHARMACEUTICALS,INC./RIDGEFIELD-2018-BI-033282

PATIENT
  Age: 71 Year
  Sex: Male

DRUGS (1)
  1. TRADJENTA [Suspect]
     Active Substance: LINAGLIPTIN
     Indication: DIABETES MELLITUS
     Route: 065
     Dates: start: 2016

REACTIONS (3)
  - Pleural effusion [Fatal]
  - Diabetic complication [Fatal]
  - Pneumonia [Fatal]

NARRATIVE: CASE EVENT DATE: 201805
